FAERS Safety Report 6582663-8 (Version None)
Quarter: 2010Q1

REPORT INFORMATION
  Report Type: 
  Country: None (occurrence: None)
  Receive Date: 20100216
  Receipt Date: 20100209
  Transmission Date: 20100710
  Serious: Yes (Other)
  Sender: FDA-Public Use
  Company Number: US-BAYER-201011483BCC

PATIENT
  Age: 71 Year
  Sex: Male
  Weight: 86 kg

DRUGS (8)
  1. ASPIRIN [Suspect]
     Indication: ISCHAEMIC HEART DISEASE PROPHYLAXIS
     Dosage: TOTAL DAILY DOSE: 324 MG  UNIT DOSE: 81 MG
     Route: 048
     Dates: start: 19910101
  2. PLAVIX [Suspect]
     Indication: DRUG USE FOR UNKNOWN INDICATION
     Dosage: TOTAL DAILY DOSE: 75 MG  UNIT DOSE: 75 MG
     Route: 048
  3. METFORMIN HCL [Concomitant]
     Route: 065
  4. COZAAR [Concomitant]
     Dosage: TOTAL DAILY DOSE: 50 MG  UNIT DOSE: 50 MG
     Route: 065
  5. LIPITOR [Concomitant]
     Dosage: TOTAL DAILY DOSE: 20 MG  UNIT DOSE: 20 MG
     Route: 065
  6. METOPROLOL TARTRATE [Concomitant]
     Dosage: TOTAL DAILY DOSE: 100 MG  UNIT DOSE: 50 MG
     Route: 065
  7. QUINAPRIL [Concomitant]
     Dosage: TOTAL DAILY DOSE: 40 MG  UNIT DOSE: 20 MG
     Route: 065
  8. KIDNEY DAMAGE PREVENTION MEDICATION [Concomitant]
     Indication: RENAL DISORDER

REACTIONS (1)
  - BLEEDING TIME PROLONGED [None]
